FAERS Safety Report 6414462-1 (Version None)
Quarter: 2009Q4

REPORT INFORMATION
  Report Type: 
  Country: None (occurrence: None)
  Receive Date: 20091026
  Receipt Date: 20091020
  Transmission Date: 20100525
  Serious: Yes (Other)
  Sender: FDA-Public Use
  Company Number: PHEH2009US13600

PATIENT
  Sex: Female

DRUGS (2)
  1. FEMARA [Suspect]
     Indication: BREAST CANCER IN SITU
     Dosage: 2.5 MG, QD
     Route: 048
     Dates: start: 20090401
  2. FEMARA [Suspect]
     Indication: BREAST NEOPLASM

REACTIONS (2)
  - FALL [None]
  - HAND FRACTURE [None]
